FAERS Safety Report 12966075 (Version 1)
Quarter: 2016Q4

REPORT INFORMATION
  Report Type: Other
  Country: FR (occurrence: FR)
  Receive Date: 20161122
  Receipt Date: 20161122
  Transmission Date: 20170207
  Serious: Yes (Hospitalization)
  Sender: FDA-Public Use
  Company Number: FR-CANTON LABORATORIES, LLC-1059963

PATIENT
  Age: 38 Year
  Sex: Male
  Weight: 87 kg

DRUGS (3)
  1. SYSTEMIC STEROID THERAPY [Concomitant]
     Active Substance: UNSPECIFIED INGREDIENT
     Route: 058
  2. ANAPROX DS [Suspect]
     Active Substance: NAPROXEN SODIUM
     Indication: POLYARTHRITIS
     Route: 048
     Dates: start: 20160831, end: 20160921
  3. SALAZOPYRINE [Suspect]
     Active Substance: SULFASALAZINE
     Route: 048
     Dates: start: 20160831, end: 20160921

REACTIONS (2)
  - Asthenia [Recovered/Resolved]
  - Drug reaction with eosinophilia and systemic symptoms [Recovered/Resolved]

NARRATIVE: CASE EVENT DATE: 20160916
